FAERS Safety Report 24640964 (Version 1)
Quarter: 2024Q4

REPORT INFORMATION
  Report Type: Report from Study
  Country: ES (occurrence: ES)
  Receive Date: 20241120
  Receipt Date: 20241120
  Transmission Date: 20250115
  Serious: Yes (Hospitalization)
  Sender: Y-MABS THERAPEUTICS
  Company Number: ES-Y-MABS THERAPEUTICS, INC.-COM2021-ES-000364

PATIENT

DRUGS (6)
  1. NAXITAMAB [Suspect]
     Active Substance: NAXITAMAB
     Indication: Neuroblastoma recurrent
     Dosage: 3 MG/KG, CYCLE 1, DOSE 1
     Route: 042
     Dates: start: 20210215, end: 20210215
  2. NAXITAMAB [Suspect]
     Active Substance: NAXITAMAB
     Dosage: 3 MG/KG, CYCLE 1, DOSE 2
     Route: 042
     Dates: start: 20210217, end: 20210217
  3. NAXITAMAB [Suspect]
     Active Substance: NAXITAMAB
     Dosage: 3 MG/KG, CYCLE 1, DOSE 3
     Dates: start: 20210219, end: 20210219
  4. GRANULOCYTE-MACROPHAGE COLONY-STIMULATING FACTOR [Suspect]
     Active Substance: GRANULOCYTE-MACROPHAGE COLONY-STIMULATING FACTOR
     Indication: Neuroblastoma recurrent
     Dosage: 250 ?G/M, 2 CYCLE 1, DOSE 1
     Route: 058
     Dates: start: 20210210, end: 20210210
  5. GRANULOCYTE-MACROPHAGE COLONY-STIMULATING FACTOR [Suspect]
     Active Substance: GRANULOCYTE-MACROPHAGE COLONY-STIMULATING FACTOR
     Dosage: 500 ?G/M2, CYCLE 1, DOSE 2
     Dates: start: 20210217, end: 20210217
  6. GRANULOCYTE-MACROPHAGE COLONY-STIMULATING FACTOR [Suspect]
     Active Substance: GRANULOCYTE-MACROPHAGE COLONY-STIMULATING FACTOR
     Dosage: 500 ?G/M2, CYCLE 1, DOSE 3
     Route: 058
     Dates: start: 20210219, end: 20210219

REACTIONS (3)
  - Hypertension [Recovered/Resolved]
  - Hypertension [Recovered/Resolved]
  - Orthostatic hypotension [Recovered/Resolved]

NARRATIVE: CASE EVENT DATE: 20210217
